FAERS Safety Report 6466254-5 (Version None)
Quarter: 2009Q4

REPORT INFORMATION
  Report Type: 
  Country: None (occurrence: None)
  Receive Date: 20091202
  Receipt Date: 20091120
  Transmission Date: 20100525
  Serious: Yes (Hospitalization)
  Sender: FDA-Public Use
  Company Number: PHHY2009IE28922

PATIENT
  Sex: Female

DRUGS (11)
  1. CLOZARIL [Suspect]
     Indication: SCHIZOPHRENIA
     Dosage: 425 MG DAILY
     Dates: start: 19931108
  2. LIPITOR [Concomitant]
     Indication: HYPERLIPIDAEMIA
     Dosage: 40 MG/DAY
     Route: 048
  3. DONA [Concomitant]
     Dosage: 1 TABLET/DAY
     Route: 048
  4. BIODEL [Concomitant]
     Indication: ARTHRITIS
     Dosage: 50 MG, BID
     Route: 048
  5. EFFEXOR XR [Concomitant]
     Indication: DEPRESSION
     Dosage: 225 MG, QD
     Route: 048
  6. STENETIL [Concomitant]
     Dosage: 5 MG, TID
     Route: 048
  7. DIAMICRON [Concomitant]
     Dosage: 120 MG, BID
     Route: 048
  8. METFORMIN HCL [Concomitant]
     Indication: DIABETES MELLITUS
     Dosage: 1000 MG, BID
     Route: 048
  9. RAMIPRIL [Concomitant]
     Indication: HYPERTENSION
     Dosage: 5 MG, QD
     Route: 048
  10. MIRTAZAPINE [Concomitant]
     Indication: DEPRESSION
     Dosage: 15 MG, QHS
     Route: 048
  11. ASASANTIN - SLOW RELEASE [Concomitant]
     Dosage: 1 DF, QD

REACTIONS (6)
  - BLOOD GLUCOSE INCREASED [None]
  - CIRCULATORY COLLAPSE [None]
  - CONFUSIONAL STATE [None]
  - HAEMOGLOBIN DECREASED [None]
  - PYREXIA [None]
  - URINARY TRACT INFECTION [None]
